FAERS Safety Report 7798343-7 (Version None)
Quarter: 2011Q4

REPORT INFORMATION
  Report Type: 
  Country: None (occurrence: None)
  Receive Date: 20111005
  Receipt Date: 20110928
  Transmission Date: 20120403
  Serious: Yes (Hospitalization, Other)
  Sender: FDA-Public Use
  Company Number: US-B.I. PHARMACEUTICALS,INC./RIDGEFIELD-2011-BP-09288BP

PATIENT
  Age: 81 Year
  Sex: Male

DRUGS (10)
  1. FINASTERIDE [Concomitant]
  2. FLOMAX [Concomitant]
  3. PAROXETINE HCL [Concomitant]
  4. METOPROLOL TARTRATE [Concomitant]
  5. RAMIPRIL [Concomitant]
  6. DEPLIN [Concomitant]
  7. PRADAXA [Suspect]
     Indication: ATRIAL FIBRILLATION
     Dosage: 300 MG
     Route: 048
     Dates: start: 20110319, end: 20110324
  8. MELATONIN [Concomitant]
  9. LIPITOR [Concomitant]
  10. LEVOTHYROZINE [Concomitant]

REACTIONS (3)
  - HAEMATOCHEZIA [None]
  - GOUT [None]
  - COLON CANCER [None]
